FAERS Safety Report 14377038 (Version 1)
Quarter: 2018Q1

REPORT INFORMATION
  Report Type: Spontaneous
  Country: US (occurrence: US)
  Receive Date: 20180111
  Receipt Date: 20180111
  Transmission Date: 20180509
  Serious: No
  Sender: FDA-Public Use
  Company Number: US-DRREDDYS-USA/USA/17/0087520

PATIENT
  Age: 75 Year
  Sex: Male
  Weight: 56.69 kg

DRUGS (5)
  1. HABITROL [Suspect]
     Active Substance: NICOTINE
     Indication: SMOKING CESSATION THERAPY
     Route: 062
     Dates: start: 201612
  2. HABITROL [Suspect]
     Active Substance: NICOTINE
     Route: 062
  3. ASPIRIN. [Concomitant]
     Active Substance: ASPIRIN
     Indication: PRODUCT USED FOR UNKNOWN INDICATION
     Route: 065
  4. HABITROL [Suspect]
     Active Substance: NICOTINE
     Route: 062
  5. HABITROL [Suspect]
     Active Substance: NICOTINE
     Route: 062
     Dates: end: 20170224

REACTIONS (5)
  - Dizziness [Recovered/Resolved]
  - Diplopia [Recovered/Resolved]
  - Abnormal dreams [Recovered/Resolved]
  - Gait disturbance [Recovered/Resolved]
  - Inappropriate schedule of drug administration [Unknown]

NARRATIVE: CASE EVENT DATE: 201612
